FAERS Safety Report 6981235-0 (Version None)
Quarter: 2010Q3

REPORT INFORMATION
  Report Type: 
  Country: None (occurrence: None)
  Receive Date: 20100827
  Receipt Date: 20100218
  Transmission Date: 20110219
  Serious: Yes (Other)
  Sender: FDA-Public Use
  Company Number: 2010SCPR000361

PATIENT
  Age: 73 Year
  Sex: Female

DRUGS (4)
  1. MEGACE ES [Suspect]
     Indication: DECREASED APPETITE
     Dosage: 1 DF, QD, ORAL; ORAL
     Route: 048
     Dates: start: 20090101, end: 20090831
  2. METFORMIN HCL [Concomitant]
  3. THYROID TAB [Concomitant]
  4. DIOVAN [Concomitant]

REACTIONS (1)
  - THROMBOSIS [None]
